FAERS Safety Report 18765496 (Version 1)
Quarter: 2021Q1

REPORT INFORMATION
  Report Type: Spontaneous
  Country: FR (occurrence: FR)
  Receive Date: 20210120
  Receipt Date: 20210120
  Transmission Date: 20210419
  Serious: Yes (Death, Other)
  Sender: FDA-Public Use
  Company Number: FR-PURDUE-USA-2021-0197579

PATIENT
  Age: 42 Year
  Sex: Male

DRUGS (5)
  1. PARACETAMOL [Suspect]
     Active Substance: ACETAMINOPHEN
     Indication: INTENTIONAL PRODUCT MISUSE
     Dosage: INCONNUE
     Route: 065
     Dates: end: 2019
  2. MORPHINE SULFATE. [Suspect]
     Active Substance: MORPHINE SULFATE
     Indication: INTENTIONAL PRODUCT MISUSE
     Dosage: INCONNUE
     Route: 065
     Dates: end: 2019
  3. TRAMADOL CLORHIDRATO [Suspect]
     Active Substance: TRAMADOL HYDROCHLORIDE
     Indication: INTENTIONAL PRODUCT MISUSE
     Dosage: INCONNUE
     Route: 065
     Dates: end: 2019
  4. CODEINE [Suspect]
     Active Substance: CODEINE
     Indication: INTENTIONAL PRODUCT MISUSE
     Dosage: INCONNUE
     Route: 065
     Dates: end: 2019
  5. PREGABALINE [Suspect]
     Active Substance: PREGABALIN
     Indication: INTENTIONAL PRODUCT MISUSE
     Dosage: INCONNUE
     Route: 065
     Dates: end: 2019

REACTIONS (2)
  - Respiratory depression [Fatal]
  - Poisoning deliberate [Fatal]

NARRATIVE: CASE EVENT DATE: 2019
